FAERS Safety Report 8311340-8 (Version None)
Quarter: 2012Q2

REPORT INFORMATION
  Report Type: 
  Country: None (occurrence: None)
  Receive Date: 20120425
  Receipt Date: 20120419
  Transmission Date: 20120825
  Serious: Yes (Hospitalization)
  Sender: FDA-Public Use
  Company Number: JP-VIIV HEALTHCARE LIMITED-B0797130A

PATIENT
  Sex: Female

DRUGS (8)
  1. BUFFERIN [Concomitant]
     Indication: PROPHYLAXIS
     Dosage: 81MG PER DAY
     Route: 048
  2. AMLODIPINE [Concomitant]
     Indication: HYPERTENSION
     Dosage: 5MG PER DAY
     Route: 048
  3. ZIAGEN [Suspect]
     Indication: HIV INFECTION
     Dosage: 600MG PER DAY
     Route: 048
     Dates: start: 20010410
  4. EPIVIR [Suspect]
     Indication: HIV INFECTION
     Dosage: 300MG PER DAY
     Route: 048
     Dates: start: 20051031
  5. NORVIR [Suspect]
     Indication: HIV INFECTION
     Dosage: 100MG PER DAY
     Route: 048
     Dates: start: 20080402
  6. REYATAZ [Suspect]
     Indication: HIV INFECTION
     Dosage: 400MG PER DAY
     Route: 048
     Dates: start: 20080115, end: 20080401
  7. REYATAZ [Suspect]
     Dosage: 300MG PER DAY
     Route: 048
     Dates: start: 20080402, end: 20111019
  8. LEXIVA [Suspect]
     Indication: HIV INFECTION
     Dosage: 1400MG PER DAY
     Route: 048
     Dates: start: 20111020

REACTIONS (1)
  - ANGINA PECTORIS [None]
